FAERS Safety Report 15812847 (Version 1)
Quarter: 2019Q1

REPORT INFORMATION
  Report Type: Other
  Country: GB (occurrence: GB)
  Receive Date: 20190111
  Receipt Date: 20190111
  Transmission Date: 20190417
  Serious: Yes (Hospitalization, Other)
  Sender: FDA-Public Use
  Company Number: GB-ALEXION PHARMACEUTICALS INC.-A201900264

PATIENT
  Age: 5 Year
  Sex: Male

DRUGS (3)
  1. PENICILLIN V                       /00001801/ [Concomitant]
     Active Substance: PENICILLIN V
     Indication: PROPHYLAXIS
     Dosage: UNK, BID
     Route: 065
  2. SOLIRIS [Suspect]
     Active Substance: ECULIZUMAB
     Dosage: UNK, Q2W
     Route: 042
     Dates: start: 20140130
  3. SOLIRIS [Suspect]
     Active Substance: ECULIZUMAB
     Indication: ATYPICAL HAEMOLYTIC URAEMIC SYNDROME
     Dosage: UNK
     Route: 065

REACTIONS (1)
  - Immune thrombocytopenic purpura [Not Recovered/Not Resolved]

NARRATIVE: CASE EVENT DATE: 20181212
